FAERS Safety Report 23325374 (Version 2)
Quarter: 2023Q4

REPORT INFORMATION
  Report Type: Spontaneous
  Country: US (occurrence: US)
  Receive Date: 20231221
  Receipt Date: 20231229
  Transmission Date: 20240110
  Serious: Yes (Hospitalization)
  Sender: FDA-Public Use
  Company Number: US-CIPLA LTD.-2023US08139

PATIENT

DRUGS (7)
  1. IRINOTECAN [Suspect]
     Active Substance: IRINOTECAN
     Indication: Adenocarcinoma pancreas
     Dosage: UNK, 150 MG/M2 (TOTAL 242 MG) IN D5W 250 ML WAS THEN INITIATED AT 175 ML/HR OVER 90 MINUTES
     Dates: start: 202301
  2. IRINOTECAN [Suspect]
     Active Substance: IRINOTECAN
     Dosage: UNK, IRINOTECAN WAS AGAIN ADMINISTERED HALF RATE OF 87.5 ML/HR OVER 180 MINUTES
     Dates: start: 202301
  3. LEUCOVORIN [Suspect]
     Active Substance: LEUCOVORIN\LEUCOVORIN CALCIUM
     Indication: Adenocarcinoma pancreas
     Dosage: UNK, 400 MG/M2 (TOTAL 644 MG) IN D5W 500 ML WAS INITIATED AT 266 ML/HR OVER 2 HOURS WITH ATROPINE 0.
     Dates: start: 202301
  4. FLUOROURACIL [Suspect]
     Active Substance: FLUOROURACIL
     Indication: Adenocarcinoma pancreas
     Dosage: UNK
     Route: 065
     Dates: start: 202301
  5. OXALIPLATIN [Suspect]
     Active Substance: OXALIPLATIN
     Indication: Adenocarcinoma pancreas
     Dosage: UNK, (85 MG/M2 (TOTAL 136.85 MG) IN D5W 250 ML WAS GIVEN AT 139 ML/HR OVER 2 HOURS)
     Dates: start: 202301
  6. ATROPINE [Suspect]
     Active Substance: ATROPINE\ATROPINE SULFATE
     Indication: Adenocarcinoma pancreas
     Dosage: UNK, 0.4 MG
     Dates: start: 202301
  7. FAMOTIDINE [Suspect]
     Active Substance: FAMOTIDINE
     Indication: Adenocarcinoma pancreas
     Dosage: UNK, 20 MG GIVEN 30 MINUTES AFTER INFUSION STARTED
     Dates: start: 202301

REACTIONS (6)
  - Heart rate irregular [Recovered/Resolved]
  - Tongue disorder [Recovered/Resolved]
  - Headache [Recovered/Resolved]
  - Dyspnoea [Recovered/Resolved]
  - Dizziness [Recovered/Resolved]
  - Dysarthria [Recovered/Resolved]

NARRATIVE: CASE EVENT DATE: 20230101
